FAERS Safety Report 14701330 (Version 2)
Quarter: 2018Q2

REPORT INFORMATION
  Report Type: Spontaneous
  Country: US (occurrence: US)
  Receive Date: 20180330
  Receipt Date: 20180420
  Transmission Date: 20180711
  Serious: Yes (Death)
  Sender: FDA-Public Use
  Company Number: US-ACTELION-A-US2018-169632

PATIENT
  Age: 70 Year
  Sex: Female

DRUGS (9)
  1. AZATHIOPRINE. [Concomitant]
     Active Substance: AZATHIOPRINE
     Dosage: 150 MG, UNK
  2. OPSUMIT [Suspect]
     Active Substance: MACITENTAN
     Indication: PULMONARY ARTERIAL HYPERTENSION
     Dosage: 10 MG, QD
     Route: 048
     Dates: start: 20170525, end: 201803
  3. BACTRIM [Concomitant]
     Active Substance: SULFAMETHOXAZOLE\TRIMETHOPRIM
     Dosage: ONE TAB 3 TIMES /WEEK
  4. FUROSEMIDE. [Concomitant]
     Active Substance: FUROSEMIDE
     Dosage: 20 MG, UNK
  5. AMBIEN [Concomitant]
     Active Substance: ZOLPIDEM TARTRATE
     Dosage: 10 MG, QHS
  6. LYRICA [Concomitant]
     Active Substance: PREGABALIN
     Dosage: 200 MG, TID
  7. TRAMADOL. [Concomitant]
     Active Substance: TRAMADOL
     Dosage: 50 MG, Q6HRS PRN
  8. POTASSIUM [Concomitant]
     Active Substance: POTASSIUM
     Dosage: 20 MEQ, QD
  9. GABAPENTIN. [Concomitant]
     Active Substance: GABAPENTIN
     Dosage: 300 MG, UNK

REACTIONS (2)
  - Pulmonary arterial hypertension [Fatal]
  - Disease progression [Fatal]

NARRATIVE: CASE EVENT DATE: 201803
